FAERS Safety Report 13038691 (Version 1)
Quarter: 2016Q4

REPORT INFORMATION
  Report Type: Spontaneous
  Country: FR (occurrence: FR)
  Receive Date: 20161219
  Receipt Date: 20161219
  Transmission Date: 20170207
  Serious: Yes (Hospitalization)
  Sender: FDA-Public Use
  Company Number: FR-ORION CORPORATION ORION PHARMA-ENTC2016-0742

PATIENT
  Age: 76 Year
  Sex: Male

DRUGS (5)
  1. STALEVO [Suspect]
     Active Substance: CARBIDOPA\ENTACAPONE\LEVODOPA
     Indication: PARKINSON^S DISEASE
     Dosage: STRENGTH: 25/100/200 MG
     Route: 048
     Dates: start: 201507, end: 201603
  2. MANTADIX [Suspect]
     Active Substance: AMANTADINE HYDROCHLORIDE
     Dosage: STRENGTH: 100 MG
     Route: 048
     Dates: start: 201508, end: 201603
  3. SIFROL [Suspect]
     Active Substance: PRAMIPEXOLE
     Dosage: STRENGTH: 0.52 MG
     Route: 048
     Dates: start: 201507, end: 201603
  4. ESCITALOPRAM [Suspect]
     Active Substance: ESCITALOPRAM OXALATE
     Dosage: STRENGTH: 5 MG
     Route: 048
     Dates: end: 201603
  5. AZILECT [Suspect]
     Active Substance: RASAGILINE MESYLATE
     Dosage: STRENGTH: 1 MG
     Route: 048
     Dates: start: 201603, end: 201603

REACTIONS (2)
  - Confusional state [Recovered/Resolved]
  - Aggression [Recovered/Resolved]

NARRATIVE: CASE EVENT DATE: 20160305
